FAERS Safety Report 6916702-9 (Version None)
Quarter: 2010Q3

REPORT INFORMATION
  Report Type: 
  Country: None (occurrence: None)
  Receive Date: 20100810
  Receipt Date: 20100727
  Transmission Date: 20110219
  Serious: Yes (Other)
  Sender: FDA-Public Use
  Company Number: US-PAR PHARMACEUTICAL, INC-2010SCPR001966

PATIENT

DRUGS (2)
  1. DEXAMETHASONE [Suspect]
     Indication: LYMPHOHISTIOCYTOSIS
     Dosage: UNK
     Route: 065
  2. ETOPOSIDE [Concomitant]
     Indication: LYMPHOHISTIOCYTOSIS
     Dosage: UNK
     Route: 065

REACTIONS (4)
  - BLOOD TRIGLYCERIDES INCREASED [None]
  - DIABETES MELLITUS [None]
  - INSULIN RESISTANCE [None]
  - LIVER FUNCTION TEST ABNORMAL [None]
